FAERS Safety Report 4570071-0 (Version None)
Quarter: 2005Q1

REPORT INFORMATION
  Report Type: 
  Country: None (occurrence: None)
  Receive Date: 20050131
  Receipt Date: 20041228
  Transmission Date: 20050727
  Serious: Yes (Hospitalization, Other)
  Sender: FDA-Public Use
  Company Number: 9623

PATIENT
  Age: 17 Year
  Sex: Male

DRUGS (5)
  1. VINCRISTINE [Suspect]
     Indication: NON-HODGKIN'S LYMPHOMA
  2. CYTOSINE ARABINOSIDE [Suspect]
     Indication: NON-HODGKIN'S LYMPHOMA
  3. DAUNAMYCIN [Suspect]
     Indication: NON-HODGKIN'S LYMPHOMA
  4. PREDNISONE [Suspect]
     Indication: NON-HODGKIN'S LYMPHOMA
  5. ELSPAR [Suspect]
     Indication: NON-HODGKIN'S LYMPHOMA

REACTIONS (3)
  - ABDOMINAL PAIN UPPER [None]
  - DUODENAL ULCER PERFORATION [None]
  - GASTROINTESTINAL DISORDER [None]
